FAERS Safety Report 4928607-3 (Version None)
Quarter: 2006Q1

REPORT INFORMATION
  Report Type: 
  Country: None (occurrence: None)
  Receive Date: 20060301
  Receipt Date: 20060216
  Transmission Date: 20060701
  Serious: Yes (Hospitalization)
  Sender: FDA-Public Use
  Company Number: 2006CG00346

PATIENT
  Age: 66 Year
  Sex: Female
  Weight: 54 kg

DRUGS (1)
  1. XYLOCAINE [Suspect]
     Indication: ANAESTHESIA
     Route: 007
     Dates: start: 20060113, end: 20060113

REACTIONS (5)
  - AGITATION [None]
  - HYPERHIDROSIS [None]
  - HYPERTENSION [None]
  - MUSCLE SPASMS [None]
  - TROPONIN INCREASED [None]
